FAERS Safety Report 24217359 (Version 6)
Quarter: 2024Q4

REPORT INFORMATION
  Report Type: Spontaneous
  Country: US (occurrence: US)
  Receive Date: 20240816
  Receipt Date: 20241113
  Transmission Date: 20250115
  Serious: No
  Sender: PFIZER
  Company Number: US-PFIZER INC-202400234897

PATIENT
  Age: 19 Year
  Sex: Female
  Weight: 61.224 kg

DRUGS (1)
  1. DEPO-PROVERA [Suspect]
     Active Substance: MEDROXYPROGESTERONE ACETATE
     Indication: Contraception
     Dosage: 150 MG
     Route: 030
     Dates: start: 20240807

REACTIONS (5)
  - Poor quality product administered [Unknown]
  - Incorrect dose administered [Unknown]
  - Product physical issue [Unknown]
  - Product solubility abnormal [Unknown]
  - Device occlusion [Unknown]

NARRATIVE: CASE EVENT DATE: 20240807
